FAERS Safety Report 20985023 (Version 1)
Quarter: 2022Q2

REPORT INFORMATION
  Report Type: Other
  Country: US (occurrence: None)
  Receive Date: 20220621
  Receipt Date: 20220621
  Transmission Date: 20220721
  Serious: No
  Sender: FDA-Public Use
  Company Number: US-ROCHE-2960946

PATIENT
  Age: 53 Year
  Sex: Female

DRUGS (3)
  1. CAPECITABINE [Suspect]
     Active Substance: CAPECITABINE
     Indication: Neuroendocrine carcinoma metastatic
     Route: 065
  2. OCTREOTIDE [Suspect]
     Active Substance: OCTREOTIDE
     Indication: Neuroendocrine carcinoma metastatic
     Route: 065
  3. TEMOZOLOMIDE [Suspect]
     Active Substance: TEMOZOLOMIDE
     Indication: Neuroendocrine carcinoma metastatic
     Route: 065

REACTIONS (1)
  - Disease progression [Unknown]
